FAERS Safety Report 18000565 (Version 1)
Quarter: 2020Q3

REPORT INFORMATION
  Report Type: Spontaneous
  Country: US (occurrence: US)
  Receive Date: 20200709
  Receipt Date: 20200709
  Transmission Date: 20201103
  Serious: No
  Sender: FDA-Public Use
  Company Number: US-MYLANLABS-2020M1059679

PATIENT
  Sex: Female
  Weight: 77 kg

DRUGS (1)
  1. ESTRADIOL VAGINAL CREAM USP [Suspect]
     Active Substance: ESTRADIOL
     Indication: PRODUCT USED FOR UNKNOWN INDICATION
     Dosage: UNK
     Dates: start: 2020, end: 20200620

REACTIONS (2)
  - Fungal infection [Unknown]
  - Product quality issue [Unknown]

NARRATIVE: CASE EVENT DATE: 2020
